FAERS Safety Report 6600721-6 (Version None)
Quarter: 2010Q1

REPORT INFORMATION
  Report Type: 
  Country: None (occurrence: None)
  Receive Date: 20100223
  Receipt Date: 20100223
  Transmission Date: 20100710
  Serious: No
  Sender: FDA-Public Use
  Company Number: None

PATIENT
  Age: 35 Year
  Sex: Male
  Weight: 136.0791 kg

DRUGS (4)
  1. PREDNISONE [Suspect]
     Indication: ASTHMA
     Dosage: GRADUATED DOSING PO
     Route: 048
     Dates: start: 20090901, end: 20091201
  2. PREDNISONE [Suspect]
     Indication: CONDITION AGGRAVATED
     Dosage: GRADUATED DOSING PO
     Route: 048
     Dates: start: 20090901, end: 20091201
  3. PREDNISONE [Suspect]
     Indication: DYSPNOEA
     Dosage: GRADUATED DOSING PO
     Route: 048
     Dates: start: 20090901, end: 20091201
  4. PREDNISONE [Suspect]
     Indication: H1N1 INFLUENZA
     Dosage: GRADUATED DOSING PO
     Route: 048
     Dates: start: 20090901, end: 20091201

REACTIONS (2)
  - INCORRECT DOSE ADMINISTERED [None]
  - VISUAL IMPAIRMENT [None]
